FAERS Safety Report 5414805-1 (Version None)
Quarter: 2007Q3

REPORT INFORMATION
  Report Type: 
  Country: None (occurrence: None)
  Receive Date: 20070813
  Receipt Date: 20070803
  Transmission Date: 20080115
  Serious: Yes (Other)
  Sender: FDA-Public Use
  Company Number: SP01417

PATIENT
  Age: 52 Year
  Sex: Male

DRUGS (1)
  1. OSMOPREP [Suspect]
     Indication: COLONOSCOPY
     Dosage: 4 TABLET SINGLE DOSE, ORAL
     Route: 048
     Dates: start: 20070802, end: 20070802

REACTIONS (1)
  - ANAPHYLACTIC REACTION [None]
